FAERS Safety Report 22109130 (Version 2)
Quarter: 2023Q1

REPORT INFORMATION
  Report Type: Spontaneous
  Country: DE (occurrence: DE)
  Receive Date: 20230317
  Receipt Date: 20230331
  Transmission Date: 20230417
  Serious: Yes (Other)
  Sender: FDA-Public Use
  Company Number: DE-LESVI-2023000683

PATIENT
  Age: 35 Year
  Sex: Male
  Weight: 61 kg

DRUGS (10)
  1. LAMOTRIGINE [Suspect]
     Active Substance: LAMOTRIGINE
     Indication: Product used for unknown indication
     Dosage: UNK UNK, QD (FIRST 2 WEEKS: 25-0)
     Route: 065
     Dates: start: 20210521
  2. LAMOTRIGINE [Suspect]
     Active Substance: LAMOTRIGINE
     Dosage: UNK UNK, BID (THIRD WEEK: 25-25)
     Route: 065
     Dates: start: 20210521
  3. LAMOTRIGINE [Suspect]
     Active Substance: LAMOTRIGINE
     Dosage: UNK UNK, BID (FOURTH WEEK: 50-25)
     Route: 065
  4. LAMOTRIGINE [Suspect]
     Active Substance: LAMOTRIGINE
     Dosage: UNK UNK, BID (FIFTH WEEK: 50-50SIXTH WEEK: STILL 50-50)
     Route: 065
  5. LAMOTRIGINE [Suspect]
     Active Substance: LAMOTRIGINE
     Dosage: UNK UNK, BID (SEVENTH WEEK: CONTINUED TO KEEP THE LEVEL OF 50-50)
     Route: 065
  6. LAMOTRIGINE [Suspect]
     Active Substance: LAMOTRIGINE
     Dosage: UNK UNK, BID (EIGHTH WEEK: DOSED DOWN TO 50-25)
     Route: 065
  7. LAMOTRIGINE [Suspect]
     Active Substance: LAMOTRIGINE
     Dosage: UNK UNK, BID (NINTH WEEK: FURTHER REDUCED TO 25-25)
     Route: 065
  8. LAMOTRIGINE [Suspect]
     Active Substance: LAMOTRIGINE
     Dosage: UNK UNK, QD (TENTH AND ELEVENTH WEEK: 25-0)
     Route: 065
  9. LEVETIRACETAM [Suspect]
     Active Substance: LEVETIRACETAM
     Indication: Product used for unknown indication
     Dosage: UNK
     Route: 065
  10. VALPROAT STADA [Concomitant]
     Indication: Product used for unknown indication
     Dosage: UNK
     Route: 065

REACTIONS (11)
  - Petit mal epilepsy [Unknown]
  - Umbilical haemorrhage [Unknown]
  - Pain in extremity [Recovering/Resolving]
  - Hypersensitivity [Recovering/Resolving]
  - Subcutaneous abscess [Recovering/Resolving]
  - Loss of libido [Recovering/Resolving]
  - Pruritus [Recovering/Resolving]
  - Ingrown hair [Unknown]
  - Axillary pain [Recovering/Resolving]
  - Lip haemorrhage [Recovered/Resolved]
  - Aggression [Recovering/Resolving]
